FAERS Safety Report 25844073 (Version 1)
Quarter: 2025Q3

REPORT INFORMATION
  Report Type: Spontaneous
  Country: EU (occurrence: EU)
  Receive Date: 20250925
  Receipt Date: 20250925
  Transmission Date: 20251021
  Serious: Yes (Hospitalization, Other)
  Sender: CELLTRION
  Company Number: EU-TEVA-VS-3355501

PATIENT

DRUGS (2)
  1. RITUXIMAB [Suspect]
     Active Substance: RITUXIMAB
     Indication: Product used for unknown indication
     Dates: end: 2025
  2. TERIPARATIDE [Suspect]
     Active Substance: TERIPARATIDE
     Indication: Osteoporosis
     Dates: start: 2025, end: 2025

REACTIONS (4)
  - Neck surgery [Unknown]
  - Acquired immunodeficiency syndrome [Unknown]
  - Asthenia [Not Recovered/Not Resolved]
  - Induration [Unknown]

NARRATIVE: CASE EVENT DATE: 20250101
